FAERS Safety Report 9265164 (Version 1)
Quarter: 2013Q2

REPORT INFORMATION
  Report Type: Spontaneous
  Country: US (occurrence: None)
  Receive Date: 20130430
  Receipt Date: 20130430
  Transmission Date: 20140414
  Serious: Yes (Other)
  Sender: FDA-Public Use
  Company Number: None

PATIENT
  Age: 47 Year
  Sex: Female
  Weight: 75.3 kg

DRUGS (1)
  1. TRIBENZOR [Suspect]
     Indication: HYPERTENSION
     Dates: start: 20121105, end: 20130429

REACTIONS (14)
  - Myalgia [None]
  - Joint swelling [None]
  - Asthenia [None]
  - Fatigue [None]
  - Thirst [None]
  - Ocular icterus [None]
  - Oropharyngeal pain [None]
  - Pruritus [None]
  - Abdominal pain [None]
  - Muscle spasms [None]
  - Rash [None]
  - Pollakiuria [None]
  - Skin discolouration [None]
  - Pain [None]
